FAERS Safety Report 8395145-8 (Version None)
Quarter: 2012Q2

REPORT INFORMATION
  Report Type: 
  Country: None (occurrence: None)
  Receive Date: 20120530
  Receipt Date: 20120521
  Transmission Date: 20120825
  Serious: Yes (Other)
  Sender: FDA-Public Use
  Company Number: GB-ASTRAZENECA-2012SE32491

PATIENT
  Age: 68 Year
  Sex: Female

DRUGS (4)
  1. FLUTICASONE PROPIONATE/SALMETEROL [Concomitant]
     Indication: ASTHMA
     Route: 055
     Dates: start: 20110822
  2. PREMARIN [Concomitant]
     Dates: start: 20110119
  3. ALBUTEROL [Concomitant]
     Indication: ASTHMA
     Route: 055
     Dates: start: 20110420
  4. LISINOPRIL [Suspect]
     Indication: HYPERTENSION
     Route: 048
     Dates: start: 20120424, end: 20120427

REACTIONS (3)
  - HYPERTENSION [None]
  - FEELING HOT [None]
  - ABDOMINAL PAIN UPPER [None]
